FAERS Safety Report 9623871 (Version 1)
Quarter: 2013Q4

REPORT INFORMATION
  Report Type: Spontaneous
  Country: US (occurrence: None)
  Receive Date: 20131010
  Receipt Date: 20131010
  Transmission Date: 20140711
  Serious: Yes (Hospitalization)
  Sender: FDA-Public Use
  Company Number: SYM-2013-11361

PATIENT
  Age: 78 Year
  Sex: Female

DRUGS (10)
  1. 5-FU [Suspect]
     Indication: COLORECTAL CANCER METASTATIC
     Route: 040
     Dates: start: 20130528, end: 20130528
  2. AFLIBERCEPT [Suspect]
     Indication: COLORECTAL CANCER METASTATIC
     Route: 041
     Dates: start: 20130528, end: 20130528
  3. IRINOTECAN [Suspect]
     Indication: COLORECTAL CANCER METASTATIC
     Route: 041
     Dates: start: 20130528, end: 20130528
  4. LEUCOVORIN [Suspect]
     Indication: COLORECTAL CANCER METASTATIC
     Route: 041
     Dates: start: 20130528, end: 20130528
  5. WARFARIN(WARFARIN)(WARFARIN) [Concomitant]
  6. ANALGESICS(ANALGESICS) [Concomitant]
  7. WARFARIN (WARFARIN)(WARFARIN) [Concomitant]
  8. ANALGESICS(ANALGESICS) [Concomitant]
  9. LOPERAMIDE(LOPERAMIDE)(LOPERAMIDE) [Concomitant]
  10. CORTICOSTEROID NOS (CORTICOSTEROID NOS)(CORTICOSTEROID NOS) [Concomitant]

REACTIONS (3)
  - Diarrhoea [None]
  - Chest pain [None]
  - Sinus tachycardia [None]
